FAERS Safety Report 5131457-9 (Version None)
Quarter: 2006Q4

REPORT INFORMATION
  Report Type: 
  Country: None (occurrence: None)
  Receive Date: 20061016
  Receipt Date: 20060929
  Transmission Date: 20070319
  Serious: Yes (Death)
  Sender: FDA-Public Use
  Company Number: US200609007475

PATIENT
  Age: 79 Year
  Sex: Female

DRUGS (11)
  1. TERIPARATIDE                   (TERIPARATIDE) PEN, DISPOSABLE [Suspect]
     Indication: OSTEOPOROSIS
     Dosage: 20 UG SUBCUTANEOUS
     Route: 058
     Dates: start: 20040812
  2. FORTEO [Concomitant]
  3. CALCIUM GLUCONATE [Concomitant]
  4. TRICOR [Concomitant]
  5. LOTREL [Concomitant]
  6. ASPIRIN [Concomitant]
  7. CELEBREX [Concomitant]
  8. GLUCOSAMINE [Concomitant]
  9. LEXAPRO [Concomitant]
  10. HYDROCHLOROTHIAZIDE [Concomitant]
  11. PRAVACHOL [Concomitant]

REACTIONS (1)
  - DEATH [None]
